FAERS Safety Report 25021392 (Version 2)
Quarter: 2025Q1

REPORT INFORMATION
  Report Type: Spontaneous
  Country: CL (occurrence: CL)
  Receive Date: 20250228
  Receipt Date: 20250312
  Transmission Date: 20250409
  Serious: Yes (Other)
  Sender: ROCHE
  Company Number: CL-ROCHE-10000218916

PATIENT
  Age: 32 Year
  Sex: Male
  Weight: 80 kg

DRUGS (4)
  1. RITUXIMAB [Suspect]
     Active Substance: RITUXIMAB
     Indication: Multiple sclerosis
     Route: 042
     Dates: start: 202410
  2. PREGABALIN [Concomitant]
     Active Substance: PREGABALIN
     Dates: start: 202410
  3. CLOTIAZEPAM [Concomitant]
     Active Substance: CLOTIAZEPAM
     Indication: Depression
     Dates: start: 20250110
  4. SERTRALINE [Concomitant]
     Active Substance: SERTRALINE HYDROCHLORIDE
     Dates: start: 20250110

REACTIONS (5)
  - Off label use [Unknown]
  - Demyelination [Not Recovered/Not Resolved]
  - Road traffic accident [Unknown]
  - Ligament sprain [Unknown]
  - Vertigo [Unknown]

NARRATIVE: CASE EVENT DATE: 20241001
